FAERS Safety Report 6780284-5 (Version None)
Quarter: 2010Q2

REPORT INFORMATION
  Report Type: 
  Country: None (occurrence: None)
  Receive Date: 20100618
  Receipt Date: 20100609
  Transmission Date: 20101027
  Serious: Yes (Other)
  Sender: FDA-Public Use
  Company Number: US-JNJFOC-20080904567

PATIENT
  Age: 38 Month
  Sex: Male
  Weight: 14.52 kg

DRUGS (3)
  1. CHILDREN'S TYLENOL SUSPENSION [Suspect]
     Route: 048
  2. CHILDREN'S TYLENOL SUSPENSION [Suspect]
     Indication: PYREXIA
     Route: 048
  3. TYLENOL [Suspect]
     Indication: PYREXIA
     Route: 054

REACTIONS (2)
  - DRUG INEFFECTIVE [None]
  - FEBRILE CONVULSION [None]
